FAERS Safety Report 25383549 (Version 2)
Quarter: 2025Q2

REPORT INFORMATION
  Report Type: Report from Study
  Country: GB (occurrence: GB)
  Receive Date: 20250602
  Receipt Date: 20250604
  Transmission Date: 20250717
  Serious: No
  Sender: NOVARTIS
  Company Number: GB-002147023-NVSC2025GB086717

PATIENT
  Sex: Female

DRUGS (1)
  1. COSENTYX [Suspect]
     Active Substance: SECUKINUMAB
     Indication: Spinal osteoarthritis
     Dosage: 300 MG, QMO
     Route: 058
     Dates: start: 20230607

REACTIONS (5)
  - Irritable bowel syndrome [Unknown]
  - Pain [Unknown]
  - Infection [Unknown]
  - Drug effect less than expected [Unknown]
  - Product use in unapproved indication [Unknown]
